FAERS Safety Report 4924770-9 (Version None)
Quarter: 2006Q1

REPORT INFORMATION
  Report Type: 
  Country: None (occurrence: None)
  Receive Date: 20060222
  Receipt Date: 20060208
  Transmission Date: 20060701
  Serious: Yes (Other)
  Sender: FDA-Public Use
  Company Number: SUSI-2006-00072

PATIENT
  Age: 37 Year
  Sex: Female
  Weight: 72.6 kg

DRUGS (14)
  1. EQUETRO [Suspect]
     Indication: BIPOLAR DISORDER
     Dosage: 200 MG, 2X/DAY:  BID, ORAL
     Route: 048
     Dates: start: 20051101, end: 20060129
  2. TARKA [Suspect]
     Dosage: 2/240 DAILY
     Dates: start: 20060114, end: 20060128
  3. MACROBID [Suspect]
     Dosage: 100 MG 2X DAILY
  4. NORVASC [Concomitant]
  5. AMBIEN [Concomitant]
  6. CYMBALTA [Concomitant]
  7. LORAZEPAM [Concomitant]
  8. LOTREL [Concomitant]
  9. BENADRYL (DIPHENHYDRAMINE, PHENYLPROPANOLAMINE HYDROCHLORIDE) [Concomitant]
  10. EXCEDRIN (CAFFEINE, ACETYLSALICYLIC ACID) [Concomitant]
  11. PREVACID [Concomitant]
  12. AMBIEN [Concomitant]
  13. ZYPREXA [Concomitant]
  14. DEPAKOTE [Concomitant]

REACTIONS (16)
  - ABDOMINAL PAIN [None]
  - ANXIETY [None]
  - BACK PAIN [None]
  - BIPOLAR DISORDER [None]
  - BLOOD PRESSURE INCREASED [None]
  - CHEST PAIN [None]
  - DECREASED APPETITE [None]
  - DRUG EFFECT DECREASED [None]
  - DRUG WITHDRAWAL SYNDROME [None]
  - DYSPNOEA [None]
  - GROIN PAIN [None]
  - HEPATITIS [None]
  - INSOMNIA [None]
  - PAIN IN EXTREMITY [None]
  - PAIN IN JAW [None]
  - RENAL DISORDER [None]
